FAERS Safety Report 5363692-9 (Version None)
Quarter: 2007Q2

REPORT INFORMATION
  Report Type: 
  Country: None (occurrence: None)
  Receive Date: 20070620
  Receipt Date: 20070608
  Transmission Date: 20071010
  Serious: Yes (Hospitalization, Other)
  Sender: FDA-Public Use
  Company Number: GB-AVENTIS-200621418GDDC

PATIENT
  Age: 18 Year
  Sex: Female

DRUGS (2)
  1. METRONIDAZOLE [Suspect]
  2. CEFUROXIME AXETIL [Suspect]

REACTIONS (3)
  - ABORTION SPONTANEOUS [None]
  - ACUTE RESPIRATORY DISTRESS SYNDROME [None]
  - VAGINAL HAEMORRHAGE [None]
